FAERS Safety Report 17610648 (Version 1)
Quarter: 2020Q2

REPORT INFORMATION
  Report Type: Spontaneous
  Country: US (occurrence: US)
  Receive Date: 20200401
  Receipt Date: 20200401
  Transmission Date: 20200713
  Serious: Yes (Life-Threatening, Hospitalization, Disabling, Other)
  Sender: FDA-Public Use
  Company Number: None

PATIENT
  Age: 24 Year
  Sex: Male

DRUGS (5)
  1. WELLBUTRIN XL [Concomitant]
     Active Substance: BUPROPION HYDROCHLORIDE
     Dates: start: 20191107
  2. TRUVADA [Suspect]
     Active Substance: EMTRICITABINE\TENOFOVIR DISOPROXIL FUMARATE
     Indication: PROPHYLAXIS AGAINST HIV INFECTION
     Route: 048
     Dates: start: 20180808, end: 20200331
  3. DESONIDE TOPICAL 0.05% CREAM [Concomitant]
     Dates: start: 20191107
  4. CICLOPIROX TOPICAL 0.77% CREAM [Concomitant]
     Dates: start: 20191107
  5. FLUOXETINE [Concomitant]
     Active Substance: FLUOXETINE HYDROCHLORIDE
     Dates: start: 20191219

REACTIONS (3)
  - Plasmapheresis [None]
  - Diplopia [None]
  - Guillain-Barre syndrome [None]

NARRATIVE: CASE EVENT DATE: 20200203
